FAERS Safety Report 4434966-0 (Version None)
Quarter: 2004Q3

REPORT INFORMATION
  Report Type: 
  Country: None (occurrence: None)
  Receive Date: 20040726
  Receipt Date: 20040518
  Transmission Date: 20050211
  Serious: No
  Sender: FDA-Public Use
  Company Number: USA040567928

PATIENT
  Age: 80 Year
  Sex: Female
  Weight: 84 kg

DRUGS (4)
  1. FORTEO [Suspect]
     Indication: OSTEOPOROSIS
     Dates: start: 20031101, end: 20040503
  2. LIPITOR [Concomitant]
  3. DICYCLOMINE (DICYCLOVERINE) [Concomitant]
  4. PREDNISONE [Concomitant]

REACTIONS (10)
  - ARTHRALGIA [None]
  - ASTHENIA [None]
  - FEELING ABNORMAL [None]
  - HAEMOGLOBIN DECREASED [None]
  - INFLAMMATION [None]
  - INFLUENZA LIKE ILLNESS [None]
  - MUSCULAR WEAKNESS [None]
  - MYALGIA [None]
  - PARVOVIRUS INFECTION [None]
  - RED BLOOD CELL COUNT DECREASED [None]
